FAERS Safety Report 6018385-1 (Version None)
Quarter: 2008Q4

REPORT INFORMATION
  Report Type: 
  Country: None (occurrence: None)
  Receive Date: 20081223
  Receipt Date: 20081217
  Transmission Date: 20090506
  Serious: Yes (Hospitalization)
  Sender: FDA-Public Use
  Company Number: FR-NOVOPROD-282032

PATIENT
  Age: 88 Year
  Sex: Female

DRUGS (9)
  1. INSULATARD FLEXPEN [Suspect]
     Indication: DIABETES MELLITUS
     Dosage: 22 IU, QD
     Route: 058
     Dates: start: 20080514
  2. INSULATARD FLEXPEN [Suspect]
     Dosage: 16 IU, QD
     Route: 058
  3. NOVOLOG MIX 70/30 [Suspect]
     Indication: DIABETES MELLITUS
     Dosage: 20 IU, QD
     Route: 058
     Dates: start: 20080514
  4. NOVOLOG MIX 70/30 [Suspect]
     Dosage: 16 IU, QD
     Route: 058
  5. PREDNISONE TAB [Concomitant]
     Dosage: 5 MG, QD
     Route: 048
  6. LERCAN [Concomitant]
     Dosage: 10 MG, QD
     Route: 048
  7. NITRODERM [Concomitant]
     Dosage: 5 MG, QD
     Route: 062
  8. BISOPROLOL FUMARATE [Concomitant]
     Dosage: 10 MG, QD
     Route: 048
  9. FUROSEMIDE [Concomitant]
     Dosage: 40 MG, QD
     Route: 048

REACTIONS (2)
  - CHEST PAIN [None]
  - HYPOGLYCAEMIA [None]
